FAERS Safety Report 6836340-6 (Version None)
Quarter: 2010Q3

REPORT INFORMATION
  Report Type: 
  Country: None (occurrence: None)
  Receive Date: 20100713
  Receipt Date: 20100708
  Transmission Date: 20110219
  Serious: Yes (Disabling)
  Sender: FDA-Public Use
  Company Number: FR-MERCK-1007FRA00034

PATIENT
  Age: 47 Year
  Sex: Male

DRUGS (4)
  1. ISENTRESS [Suspect]
     Indication: HIV INFECTION
     Route: 048
     Dates: start: 20090114
  2. RITONAVIR [Suspect]
     Indication: HIV INFECTION
     Route: 048
     Dates: start: 20040218
  3. DARUNAVIR [Suspect]
     Indication: HIV INFECTION
     Route: 048
     Dates: start: 20040218
  4. VALACYCLOVIR HYDROCHLORIDE [Concomitant]
     Indication: HERPES SIMPLEX
     Route: 048
     Dates: start: 20031013

REACTIONS (1)
  - OSTEONECROSIS [None]
